FAERS Safety Report 9051864 (Version 1)
Quarter: 2013Q1

REPORT INFORMATION
  Report Type: Spontaneous
  Country: US (occurrence: None)
  Receive Date: 20130130
  Receipt Date: 20130130
  Transmission Date: 20140127
  Serious: Yes (Hospitalization)
  Sender: FDA-Public Use
  Company Number: None

PATIENT
  Age: 60 Year
  Sex: Male
  Weight: 90.4 kg

DRUGS (6)
  1. LISINOPRIL [Suspect]
     Indication: HYPERTENSION
     Route: 048
  2. OMEPRAZOLE [Concomitant]
  3. CRESTOR [Concomitant]
  4. FINASTERIDE [Concomitant]
  5. VIT D3 [Concomitant]
  6. ASA [Concomitant]

REACTIONS (5)
  - Angioedema [None]
  - Syncope [None]
  - Drug hypersensitivity [None]
  - Blood urea increased [None]
  - White blood cell count increased [None]
